FAERS Safety Report 10985031 (Version 1)
Quarter: 2015Q1

REPORT INFORMATION
  Report Type: Spontaneous
  Country: US (occurrence: None)
  Receive Date: 20150312
  Receipt Date: 20150312
  Transmission Date: 20150721
  Serious: Yes (Other)
  Sender: FDA-Public Use
  Company Number: 1000066972

PATIENT
  Age: 54 Year
  Sex: Female
  Weight: 99.79 kg

DRUGS (8)
  1. SAVELLA [Suspect]
     Active Substance: MILNACIPRAN HYDROCHLORIDE
     Indication: FIBROMYALGIA
     Route: 048
     Dates: start: 20140402, end: 20140411
  2. METHYLPHENIDATE [Concomitant]
     Active Substance: METHYLPHENIDATE
  3. OXYCODONE [Concomitant]
     Active Substance: OXYCODONE
  4. RANITIDINE [Concomitant]
     Active Substance: RANITIDINE\RANITIDINE HYDROCHLORIDE
  5. ONDANSETRON [Concomitant]
     Active Substance: ONDANSETRON
  6. ALPRAZOLAM. [Concomitant]
     Active Substance: ALPRAZOLAM
  7. LORAZEPAM. [Concomitant]
     Active Substance: LORAZEPAM
  8. SAVELLA [Suspect]
     Active Substance: MILNACIPRAN HYDROCHLORIDE
     Indication: FIBROMYALGIA
     Route: 048
     Dates: start: 2014, end: 2014

REACTIONS (1)
  - Blood pressure increased [None]

NARRATIVE: CASE EVENT DATE: 20140416
